FAERS Safety Report 5584228-3 (Version None)
Quarter: 2008Q1

REPORT INFORMATION
  Report Type: 
  Country: None (occurrence: None)
  Receive Date: 20080108
  Receipt Date: 20071227
  Transmission Date: 20080703
  Serious: Yes (Hospitalization, Other)
  Sender: FDA-Public Use
  Company Number: HQWYE628101AUG06

PATIENT
  Sex: Male
  Weight: 58 kg

DRUGS (5)
  1. MYLOTARG [Suspect]
     Indication: ACUTE MYELOID LEUKAEMIA RECURRENT
     Dosage: A SINGLE 9 MG/M^2 DOSE
     Route: 041
     Dates: start: 20060511, end: 20060511
  2. DIFLUCAN [Concomitant]
     Indication: PROPHYLAXIS
     Route: 048
     Dates: start: 20060519, end: 20060602
  3. TOSUFLOXACIN TOSILATE [Concomitant]
     Indication: PROPHYLAXIS
     Route: 048
     Dates: start: 20060519, end: 20060524
  4. SELBEX [Concomitant]
     Indication: NAUSEA
     Route: 048
     Dates: start: 20060518, end: 20060617
  5. GASMOTIN [Concomitant]
     Indication: NAUSEA
     Route: 048
     Dates: start: 20060516, end: 20060617

REACTIONS (5)
  - FEBRILE NEUTROPENIA [None]
  - LIVER DISORDER [None]
  - LYMPHADENITIS [None]
  - NEUTROPHIL COUNT DECREASED [None]
  - SUBARACHNOID HAEMORRHAGE [None]
